FAERS Safety Report 10742318 (Version 2)
Quarter: 2015Q1

REPORT INFORMATION
  Report Type: Report from Study
  Country: US (occurrence: US)
  Receive Date: 20150127
  Receipt Date: 20150316
  Transmission Date: 20150721
  Serious: Yes (Death, Life-Threatening, Hospitalization)
  Sender: FDA-Public Use
  Company Number: US-009507513-1408USA015325

PATIENT
  Age: 56 Year
  Sex: Female

DRUGS (2)
  1. DILAUDID [Concomitant]
     Active Substance: HYDROMORPHONE HYDROCHLORIDE
     Indication: TUMOUR PAIN
     Dosage: 2 MG DAILY
     Route: 048
     Dates: start: 20140521
  2. PEMBROLIZUMAB. [Suspect]
     Active Substance: PEMBROLIZUMAB
     Indication: METASTATIC MALIGNANT MELANOMA
     Dosage: 2 MG/KG, Q3W,  TOTAL DAILY DOSE 98 MG
     Route: 042
     Dates: start: 20140708, end: 20140819

REACTIONS (4)
  - Tumour pain [Not Recovered/Not Resolved]
  - Malignant neoplasm progression [Fatal]
  - Sepsis [Not Recovered/Not Resolved]
  - Diarrhoea [Recovered/Resolved]

NARRATIVE: CASE EVENT DATE: 20140721
